FAERS Safety Report 22659117 (Version 1)
Quarter: 2023Q2

REPORT INFORMATION
  Report Type: Spontaneous
  Country: US (occurrence: None)
  Receive Date: 20230629
  Receipt Date: 20230629
  Transmission Date: 20230721
  Serious: Yes (Hospitalization)
  Sender: FDA-Public Use
  Company Number: None

PATIENT
  Age: 62 Year
  Sex: Male
  Weight: 110 kg

DRUGS (3)
  1. DAPTOMYCIN [Suspect]
     Active Substance: DAPTOMYCIN
     Indication: Osteomyelitis
     Dosage: FREQUENCY : DAILY;?
     Route: 042
     Dates: start: 20230520, end: 20230522
  2. CIPROFLOXACIN [Suspect]
     Active Substance: CIPROFLOXACIN
     Dates: start: 20230520, end: 20230522
  3. ALLOPURINOL [Suspect]
     Active Substance: ALLOPURINOL
     Dates: start: 20230516, end: 20230522

REACTIONS (8)
  - Drug eruption [None]
  - Drug reaction with eosinophilia and systemic symptoms [None]
  - Eosinophil count increased [None]
  - White blood cell count increased [None]
  - Blood creatinine increased [None]
  - Dehydration [None]
  - Diarrhoea [None]
  - Type IV hypersensitivity reaction [None]

NARRATIVE: CASE EVENT DATE: 20230522
